FAERS Safety Report 17336006 (Version 1)
Quarter: 2020Q1

REPORT INFORMATION
  Report Type: Spontaneous
  Country: DE (occurrence: DE)
  Receive Date: 20200128
  Receipt Date: 20200128
  Transmission Date: 20200409
  Serious: Yes (Hospitalization)
  Sender: FDA-Public Use
  Company Number: DE-MYLANLABS-2020M1009088

PATIENT
  Sex: Female
  Weight: 68 kg

DRUGS (2)
  1. PEGFILGRASTIM [Suspect]
     Active Substance: PEGFILGRASTIM
     Indication: PRODUCT USED FOR UNKNOWN INDICATION
     Dosage: STRENGTH 6 MG
     Dates: start: 20191015
  2. PIPERACILLIN/TAZOBACTAM PHARMASWISS [Concomitant]
     Active Substance: PIPERACILLIN SODIUM\TAZOBACTAM SODIUM
     Indication: CHOLECYSTITIS CHRONIC
     Dosage: DOSE: 1X
     Route: 042
     Dates: start: 20191021, end: 20191021

REACTIONS (2)
  - Gastroenteritis [Recovered/Resolved]
  - Leukopenia [Recovered/Resolved]

NARRATIVE: CASE EVENT DATE: 20191019
